FAERS Safety Report 8178662-5 (Version None)
Quarter: 2012Q1

REPORT INFORMATION
  Report Type: 
  Country: None (occurrence: None)
  Receive Date: 20120301
  Receipt Date: 20080708
  Transmission Date: 20120608
  Serious: Yes (Hospitalization, Other)
  Sender: FDA-Public Use
  Company Number: JP-ASTELLAS-2012JP001558

PATIENT
  Sex: Female

DRUGS (5)
  1. ISOSORBIDE DINITRATE [Concomitant]
     Indication: MYOCARDIAL INFARCTION
     Dosage: 20 MG, BID
     Route: 048
     Dates: start: 20020315
  2. VESICARE [Suspect]
     Indication: HYPERTONIC BLADDER
     Dosage: 2.5 MG, UID/QD
     Route: 048
     Dates: start: 20080529, end: 20080630
  3. PERDIPINA [Concomitant]
     Indication: HYPERTENSION
     Dosage: 10 MG, TID
     Route: 048
     Dates: start: 20020315
  4. URSO 250 [Concomitant]
     Indication: HEPATIC CIRRHOSIS
     Dosage: 50 MG, BID
     Route: 048
     Dates: start: 20020315
  5. ROHYPNOL [Concomitant]
     Indication: INSOMNIA
     Dosage: 1 MG, UID/QD
     Dates: start: 20020315

REACTIONS (1)
  - SINUS BRADYCARDIA [None]
